FAERS Safety Report 20807676 (Version 1)
Quarter: 2022Q2

REPORT INFORMATION
  Report Type: Spontaneous
  Country: US (occurrence: None)
  Receive Date: 20220509
  Receipt Date: 20220509
  Transmission Date: 20220721
  Serious: No
  Sender: FDA-Public Use
  Company Number: None

PATIENT
  Age: 49 Year
  Sex: Female
  Weight: 60.75 kg

DRUGS (1)
  1. PAXLOVID [Suspect]
     Active Substance: NIRMATRELVIR\RITONAVIR
     Indication: COVID-19
     Dates: start: 20220430, end: 20220505

REACTIONS (4)
  - Pyrexia [None]
  - Pain [None]
  - Oropharyngeal pain [None]
  - Symptom recurrence [None]

NARRATIVE: CASE EVENT DATE: 20220507
